FAERS Safety Report 15265435 (Version 3)
Quarter: 2018Q4

REPORT INFORMATION
  Report Type: Report from Study
  Country: US (occurrence: US)
  Receive Date: 20180810
  Receipt Date: 20181029
  Transmission Date: 20190204
  Serious: Yes (Hospitalization)
  Sender: FDA-Public Use
  Company Number: US-PFIZER INC-2018311600

PATIENT
  Age: 66 Year
  Sex: Male
  Weight: 70.5 kg

DRUGS (14)
  1. DECADRON [Concomitant]
     Active Substance: DEXAMETHASONE
     Dosage: 4 MG, UNK
  2. PROTONIX /00661201/ [Concomitant]
     Active Substance: OMEPRAZOLE
     Dosage: 40 MG DELAYED RELEASE -CABLET
  3. MOTRIN [Concomitant]
     Active Substance: IBUPROFEN
     Dosage: 600 MG, UNK
  4. VITAMIN E /00110501/ [Concomitant]
     Active Substance: TOCOPHEROL
     Dosage: 400 IU, UNK
  5. AXITINIB [Suspect]
     Active Substance: AXITINIB
     Dosage: 10 MG, EVERY12 HOURS
     Dates: start: 20180705, end: 20180723
  6. SYNTHROID [Concomitant]
     Active Substance: LEVOTHYROXINE SODIUM
     Dosage: 125 MCG, UNK
  7. ALBUTEROL HFA [Concomitant]
     Active Substance: ALBUTEROL SULFATE
     Dosage: 90 MCG/ACTUATION INHALER
  8. NILSTAT /00036501/ [Concomitant]
     Dosage: 100000 IU/ML, SUSPENSION
  9. AXITINIB [Suspect]
     Active Substance: AXITINIB
     Indication: SQUAMOUS CELL CARCINOMA OF THE TONGUE
     Dosage: 5 MG, EVERY12 HOURS
     Dates: start: 20180606, end: 20180620
  10. NORCO [Concomitant]
     Active Substance: ACETAMINOPHEN\HYDROCODONE BITARTRATE
     Dosage: HYDROCODONE BITARTRATE 10MG]/PARACETAMOL 325MG
  11. COMPAZINE /00013302/ [Concomitant]
     Active Substance: PROCHLORPERAZINE EDISYLATE
     Dosage: 10 MG, UNK
  12. ZOFRAN ODT [Concomitant]
     Active Substance: ONDANSETRON HYDROCHLORIDE
     Dosage: 8 MG, DISINTEGRATING TABLET
  13. AXITINIB [Suspect]
     Active Substance: AXITINIB
     Dosage: 7 MG, EVERY12 HOURS
     Dates: start: 20180620, end: 20180704
  14. ZOCOR [Concomitant]
     Active Substance: SIMVASTATIN
     Dosage: 40 MG, UNK

REACTIONS (1)
  - Pneumonia [Unknown]

NARRATIVE: CASE EVENT DATE: 20180727
